FAERS Safety Report 6388526-5 (Version None)
Quarter: 2009Q4

REPORT INFORMATION
  Report Type: 
  Country: None (occurrence: None)
  Receive Date: 20091005
  Receipt Date: 20090930
  Transmission Date: 20100525
  Serious: Yes (Other)
  Sender: FDA-Public Use
  Company Number: B0596244A

PATIENT
  Sex: Male

DRUGS (3)
  1. ZYBAN [Suspect]
     Dosage: 150MG PER DAY
     Dates: start: 20090901, end: 20090901
  2. ENALAPRIL MALEATE [Concomitant]
  3. UNKNOWN MEDICATION [Concomitant]

REACTIONS (1)
  - BRONCHOSPASM [None]
